FAERS Safety Report 20018728 (Version 1)
Quarter: 2021Q4

REPORT INFORMATION
  Report Type: Spontaneous
  Country: US (occurrence: None)
  Receive Date: 20211101
  Receipt Date: 20211101
  Transmission Date: 20220303
  Serious: Yes (Other)
  Sender: FDA-Public Use
  Company Number: US-ROCHE-2945373

PATIENT
  Age: 74 Year
  Sex: Male
  Weight: 59.474 kg

DRUGS (7)
  1. LUCENTIS [Suspect]
     Active Substance: RANIBIZUMAB
     Indication: Neovascular age-related macular degeneration
     Dosage: NO
     Route: 065
     Dates: start: 2008, end: 2009
  2. TAMSULOSIN [Concomitant]
     Active Substance: TAMSULOSIN
     Dosage: YES
     Route: 048
  3. GABAPENTIN [Concomitant]
     Active Substance: GABAPENTIN
     Dosage: YES
     Route: 048
  4. BUSPIRONE [Concomitant]
     Active Substance: BUSPIRONE HYDROCHLORIDE
     Dosage: YES
     Route: 048
     Dates: start: 201907
  5. RASBURICASE [Concomitant]
     Active Substance: RASBURICASE
     Indication: Gouty tophus
  6. MELOXICAM [Concomitant]
     Active Substance: MELOXICAM
     Dosage: YES
     Route: 048
     Dates: start: 20211004
  7. ATORVASTATIN [Concomitant]
     Active Substance: ATORVASTATIN
     Dosage: YES
     Route: 048
     Dates: start: 202110

REACTIONS (3)
  - Blindness unilateral [Unknown]
  - Neovascular age-related macular degeneration [Not Recovered/Not Resolved]
  - Low density lipoprotein increased [Unknown]

NARRATIVE: CASE EVENT DATE: 20210901
